FAERS Safety Report 16865768 (Version 1)
Quarter: 2019Q3

REPORT INFORMATION
  Report Type: Spontaneous
  Country: US (occurrence: US)
  Receive Date: 20190930
  Receipt Date: 20190930
  Transmission Date: 20191005
  Serious: No
  Sender: FDA-Public Use
  Company Number: US-ELI_LILLY_AND_COMPANY-US201909013584

PATIENT
  Sex: Male

DRUGS (4)
  1. TADALAFIL. [Concomitant]
     Active Substance: TADALAFIL
     Indication: PRODUCT USED FOR UNKNOWN INDICATION
  2. HUMALOG [Suspect]
     Active Substance: INSULIN LISPRO
     Indication: TYPE 2 DIABETES MELLITUS
     Dosage: UNK UNK, PRN (SLIDING SCALE)
     Route: 058
     Dates: start: 20190922
  3. TOUJEO [Suspect]
     Active Substance: INSULIN GLARGINE
     Indication: TYPE 2 DIABETES MELLITUS
     Dosage: 22 U, DAILY
  4. KLONOPIN [Concomitant]
     Active Substance: CLONAZEPAM
     Indication: SLEEP DISORDER

REACTIONS (3)
  - Blood glucose increased [Unknown]
  - Impaired healing [Unknown]
  - Visual impairment [Unknown]
